FAERS Safety Report 24350162 (Version 1)
Quarter: 2024Q3

REPORT INFORMATION
  Report Type: Spontaneous
  Country: US (occurrence: US)
  Receive Date: 20240923
  Receipt Date: 20240923
  Transmission Date: 20241016
  Serious: No
  Sender: AUROBINDO
  Company Number: US-AUROBINDO-AUR-APL-2024-029550

PATIENT
  Age: 54 Year
  Sex: Male
  Weight: 79.378 kg

DRUGS (1)
  1. LENALIDOMIDE [Suspect]
     Active Substance: LENALIDOMIDE
     Indication: Product used for unknown indication
     Dosage: UNK, CYCLICAL (DAILY X 21 DAYS THEN 1 WEEK OFF EVERY 28 DAYS)
     Route: 065

REACTIONS (1)
  - Respiratory symptom [Unknown]
